FAERS Safety Report 20077686 (Version 1)
Quarter: 2021Q4

REPORT INFORMATION
  Report Type: Spontaneous
  Country: DE (occurrence: DE)
  Receive Date: 20211116
  Receipt Date: 20211116
  Transmission Date: 20220303
  Serious: Yes (Other)
  Sender: FDA-Public Use
  Company Number: DE-ROCHE-2886226

PATIENT
  Sex: Male

DRUGS (5)
  1. SORAFENIB [Suspect]
     Active Substance: SORAFENIB
     Indication: Hepatocellular carcinoma
     Dosage: 400 MILLIGRAM, QD, (400 MG DAILY)
     Route: 048
  2. BEVACIZUMAB [Concomitant]
     Active Substance: BEVACIZUMAB
     Indication: Hepatocellular carcinoma
     Dosage: 15 MILLIGRAM/KILOGRAM
     Route: 065
  3. ATEZOLIZUMAB [Concomitant]
     Active Substance: ATEZOLIZUMAB
     Indication: Hepatocellular carcinoma
     Dosage: 1200 MILLIGRAM
     Route: 065
     Dates: start: 202005
  4. RAMUCIRUMAB [Concomitant]
     Active Substance: RAMUCIRUMAB
     Dosage: 8 MILLIGRAM
  5. LENVATINIB [Concomitant]
     Active Substance: LENVATINIB
     Dosage: 8 MILLIGRAM

REACTIONS (7)
  - Hypertension [Unknown]
  - Weight increased [Unknown]
  - Off label use [Unknown]
  - Metastases to lung [Unknown]
  - Hepatic cancer [Unknown]
  - Metastasis [Unknown]
  - Treatment failure [Unknown]

NARRATIVE: CASE EVENT DATE: 20200401
